FAERS Safety Report 7767060-1 (Version None)
Quarter: 2011Q3

REPORT INFORMATION
  Report Type: 
  Country: None (occurrence: None)
  Receive Date: 20110922
  Receipt Date: 20101108
  Transmission Date: 20111222
  Serious: No
  Sender: FDA-Public Use
  Company Number: US-ASTRAZENECA-2010SE52905

PATIENT
  Age: 27 Year
  Sex: Male

DRUGS (3)
  1. CELEXA [Concomitant]
  2. SEROQUEL XR [Suspect]
     Indication: BIPOLAR II DISORDER
     Route: 048
     Dates: start: 20090101, end: 20101102
  3. TENORMIN [Concomitant]

REACTIONS (4)
  - DRUG DOSE OMISSION [None]
  - AGITATION [None]
  - INSOMNIA [None]
  - DISTURBANCE IN ATTENTION [None]
